FAERS Safety Report 10909356 (Version 1)
Quarter: 2015Q1

REPORT INFORMATION
  Report Type: Spontaneous
  Country: US (occurrence: US)
  Receive Date: 20150312
  Receipt Date: 20150312
  Transmission Date: 20150721
  Serious: No
  Sender: FDA-Public Use
  Company Number: US-SA-2014SA052589

PATIENT
  Age: 74 Year
  Sex: Male

DRUGS (2)
  1. NASACORT ALLERGY 24HR [Suspect]
     Active Substance: TRIAMCINOLONE ACETONIDE
     Indication: HYPERSENSITIVITY
     Dosage: DOSE:1 UNIT(S)
     Dates: end: 20140417
  2. NASACORT ALLERGY 24HR [Suspect]
     Active Substance: TRIAMCINOLONE ACETONIDE
     Indication: HYPERSENSITIVITY
     Dosage: 2 SPRAYS EACH NOSTRIL DOSE:2 UNIT(S)
     Route: 065
     Dates: start: 20140320

REACTIONS (2)
  - Oropharyngeal pain [Not Recovered/Not Resolved]
  - Mucosal pigmentation [Not Recovered/Not Resolved]
